FAERS Safety Report 9410003 (Version 2)
Quarter: 2013Q2

REPORT INFORMATION
  Report Type: Spontaneous
  Country: US (occurrence: None)
  Receive Date: 20130610
  Receipt Date: 20130628
  Transmission Date: 20140414
  Serious: Yes (Hospitalization)
  Sender: FDA-Public Use
  Company Number: 2013P1004832

PATIENT
  Age: 35 Year
  Sex: Female
  Weight: 97.52 kg

DRUGS (13)
  1. CLONIDINE [Suspect]
     Indication: PROCEDURAL PAIN
     Route: 037
     Dates: start: 20060914
  2. CLONIDINE [Suspect]
     Indication: SPINAL LAMINECTOMY
     Route: 037
     Dates: start: 20060914
  3. CLONIDINE [Suspect]
     Route: 037
     Dates: start: 20060914
  4. MORPHINE [Suspect]
     Indication: SPINAL LAMINECTOMY
     Route: 037
     Dates: start: 20030908
  5. MORPHINE [Suspect]
     Indication: PROCEDURAL PAIN
     Route: 037
     Dates: start: 20030908
  6. GEODON [Concomitant]
  7. CYMBALTA [Concomitant]
  8. LAMICTAL [Concomitant]
  9. SKELAXIN [Concomitant]
  10. METHADONE [Concomitant]
  11. REGLAN [Concomitant]
  12. MORPHINE [Concomitant]
  13. TOPAMAX [Concomitant]

REACTIONS (11)
  - Hypoperfusion [None]
  - Device kink [None]
  - Device battery issue [None]
  - Device occlusion [None]
  - Intervertebral disc protrusion [None]
  - Nausea [None]
  - Vomiting [None]
  - Insomnia [None]
  - Cold sweat [None]
  - Formication [None]
  - Diarrhoea [None]
